FAERS Safety Report 15690376 (Version 2)
Quarter: 2018Q4

REPORT INFORMATION
  Report Type: Spontaneous
  Country: US (occurrence: US)
  Receive Date: 20181205
  Receipt Date: 20181211
  Transmission Date: 20190205
  Serious: No
  Sender: FDA-Public Use
  Company Number: US-PFIZER INC-2018500437

PATIENT
  Age: 45 Year
  Sex: Male

DRUGS (1)
  1. SOMAVERT [Suspect]
     Active Substance: PEGVISOMANT
     Dosage: 25 MG, DAILY

REACTIONS (10)
  - Headache [Not Recovered/Not Resolved]
  - Varicose vein [Unknown]
  - Hypoaesthesia [Unknown]
  - Acne [Unknown]
  - Glycosylated haemoglobin increased [Unknown]
  - Blood prolactin decreased [Unknown]
  - Dizziness [Unknown]
  - Chest pain [Unknown]
  - Paraesthesia [Unknown]
  - Back pain [Unknown]
